FAERS Safety Report 19710180 (Version 1)
Quarter: 2021Q3

REPORT INFORMATION
  Report Type: Spontaneous
  Country: DE (occurrence: DE)
  Receive Date: 20210817
  Receipt Date: 20210817
  Transmission Date: 20211014
  Serious: Yes (Other)
  Sender: FDA-Public Use
  Company Number: DE-ELI_LILLY_AND_COMPANY-DE202108001752

PATIENT
  Sex: Female
  Weight: 84 kg

DRUGS (8)
  1. L?THYROX HEXAL [Suspect]
     Active Substance: LEVOTHYROXINE SODIUM
     Indication: THYROID DISORDER
     Dosage: 1 TABLET, DAILY
     Route: 065
     Dates: start: 201907
  2. SPASMEX [TROSPIUM CHLORIDE] [Suspect]
     Active Substance: TROSPIUM CHLORIDE
     Indication: HYPERTONIC BLADDER
     Dosage: 1 TABLET, DAILY
     Route: 065
     Dates: start: 201907
  3. VALTREX [Suspect]
     Active Substance: VALACYCLOVIR HYDROCHLORIDE
     Indication: VARICELLA
     Dosage: 3 DF, QD
     Route: 065
     Dates: start: 20201002, end: 202010
  4. IBUFLAM [IBUPROFEN] [Suspect]
     Active Substance: IBUPROFEN
     Indication: PYREXIA
     Dosage: 1 TABLET, PRN
     Route: 065
     Dates: start: 20201002, end: 202010
  5. VERAPAMIL [Suspect]
     Active Substance: VERAPAMIL HYDROCHLORIDE
     Indication: HYPERTENSION
     Dosage: 2 TABLETS, DAILY
     Route: 065
     Dates: start: 201707
  6. SPASMEX [TROSPIUM CHLORIDE] [Suspect]
     Active Substance: TROSPIUM CHLORIDE
     Indication: URGE INCONTINENCE
     Dosage: UNK
     Route: 065
  7. ZIPRASIDONE. [Suspect]
     Active Substance: ZIPRASIDONE
     Indication: MENTAL DISORDER
     Dosage: 1 TABLET, DAILY
     Route: 065
     Dates: start: 202007, end: 202101
  8. DULOXETINE HYDROCHLORIDE. [Suspect]
     Active Substance: DULOXETINE HYDROCHLORIDE
     Indication: MENTAL DISORDER
     Dosage: 1 CAPSULE, DAILY
     Route: 065
     Dates: start: 202007, end: 202012

REACTIONS (2)
  - Hepatitis [Recovered/Resolved]
  - Off label use [Unknown]

NARRATIVE: CASE EVENT DATE: 202010
